FAERS Safety Report 5136625-8 (Version None)
Quarter: 2006Q4

REPORT INFORMATION
  Report Type: 
  Country: None (occurrence: None)
  Receive Date: 20061023
  Receipt Date: 20061016
  Transmission Date: 20070319
  Serious: Yes (Death, Hospitalization, Other)
  Sender: FDA-Public Use
  Company Number: 163-20785-06081072

PATIENT
  Age: 79 Year
  Sex: Male

DRUGS (1)
  1. THALOMID [Suspect]
     Indication: MULTIPLE MYELOMA
     Dosage: 100 MG, 1 IN 1 D, ORAL
     Route: 048
     Dates: start: 20060626

REACTIONS (5)
  - DISEASE PROGRESSION [None]
  - MULTIPLE MYELOMA [None]
  - RENAL FAILURE [None]
  - RESPIRATORY FAILURE [None]
  - SEPSIS [None]
